FAERS Safety Report 21639524 (Version 1)
Quarter: 2022Q4

REPORT INFORMATION
  Report Type: Spontaneous
  Country: US (occurrence: None)
  Receive Date: 20221124
  Receipt Date: 20221124
  Transmission Date: 20230113
  Serious: No
  Sender: FDA-Public Use
  Company Number: 2022A365300

PATIENT
  Sex: Male
  Weight: 65.8 kg

DRUGS (2)
  1. SYMBICORT [Suspect]
     Active Substance: BUDESONIDE\FORMOTEROL FUMARATE DIHYDRATE
     Indication: Asthma
     Dosage: 80/4.5MCG FOR ASTHMA AND COPD 2 PUFFS IN THE MORNING, DAILY
     Route: 055
     Dates: start: 2022
  2. SYMBICORT [Suspect]
     Active Substance: BUDESONIDE\FORMOTEROL FUMARATE DIHYDRATE
     Indication: Chronic obstructive pulmonary disease
     Dosage: 80/4.5MCG FOR ASTHMA AND COPD 2 PUFFS IN THE MORNING, DAILY
     Route: 055
     Dates: start: 2022

REACTIONS (6)
  - Lung disorder [Unknown]
  - Device delivery system issue [Unknown]
  - Intentional product misuse [Unknown]
  - Incorrect dose administered by device [Unknown]
  - Device use issue [Unknown]
  - Off label use [Unknown]
